FAERS Safety Report 24563801 (Version 5)
Quarter: 2024Q4

REPORT INFORMATION
  Report Type: Spontaneous
  Country: CN (occurrence: CN)
  Receive Date: 20241030
  Receipt Date: 20241127
  Transmission Date: 20250114
  Serious: Yes (Death)
  Sender: ROCHE
  Company Number: CN-ROCHE-10000116223

PATIENT
  Age: 75 Year
  Sex: Male

DRUGS (3)
  1. ATEZOLIZUMAB [Suspect]
     Active Substance: ATEZOLIZUMAB
     Indication: Lung neoplasm malignant
     Route: 065
  2. SERPLULIMAB [Concomitant]
     Active Substance: SERPLULIMAB
  3. TRILACICLIB [Concomitant]
     Active Substance: TRILACICLIB

REACTIONS (2)
  - Hepatic function abnormal [Fatal]
  - Product quality issue [Unknown]

NARRATIVE: CASE EVENT DATE: 20240927
